FAERS Safety Report 25567027 (Version 1)
Quarter: 2025Q3

REPORT INFORMATION
  Report Type: Spontaneous
  Country: TW (occurrence: TW)
  Receive Date: 20250716
  Receipt Date: 20250716
  Transmission Date: 20251021
  Serious: Yes (Life-Threatening)
  Sender: FRESENIUS KABI
  Company Number: TW-FreseniusKabi-FK202509503

PATIENT
  Age: 28 Year
  Sex: Male
  Weight: 83.1 kg

DRUGS (3)
  1. PROPOFOL [Suspect]
     Active Substance: PROPOFOL
     Indication: Endoscopy
     Route: 041
     Dates: start: 20250617, end: 20250617
  2. FENTANYL [Concomitant]
     Active Substance: FENTANYL
     Indication: Endoscopy
     Dates: start: 20250617, end: 20250617
  3. LIDOCAINE [Concomitant]
     Active Substance: LIDOCAINE
     Indication: Endoscopy
     Dates: start: 20250617, end: 20250617

REACTIONS (1)
  - Anaphylactic shock [Recovered/Resolved]

NARRATIVE: CASE EVENT DATE: 20250617
